FAERS Safety Report 4678557-5 (Version None)
Quarter: 2005Q2

REPORT INFORMATION
  Report Type: 
  Country: None (occurrence: None)
  Receive Date: 20050531
  Receipt Date: 20050531
  Transmission Date: 20051028
  Serious: Yes (Life-Threatening)
  Sender: FDA-Public Use
  Company Number: None

PATIENT
  Sex: Female

DRUGS (2)
  1. METHADON HCL TAB [Suspect]
     Indication: BONE PAIN
     Dosage: 200 MG DAILY PO
     Route: 048
     Dates: start: 20010101
  2. METHADON HCL TAB [Suspect]
     Indication: CONGENITAL ANOMALY
     Dosage: 200 MG DAILY PO
     Route: 048
     Dates: start: 20010101

REACTIONS (3)
  - CARDIAC ARREST [None]
  - ELECTROCARDIOGRAM QT PROLONGED [None]
  - VENTRICULAR TACHYCARDIA [None]
